FAERS Safety Report 5635327-9 (Version None)
Quarter: 2008Q1

REPORT INFORMATION
  Report Type: 
  Country: None (occurrence: None)
  Receive Date: 20080222
  Receipt Date: 20080207
  Transmission Date: 20080703
  Serious: Yes (Hospitalization, Other)
  Sender: FDA-Public Use
  Company Number: AU-GENENTECH-255681

PATIENT
  Sex: Female

DRUGS (1)
  1. XOLAIR [Suspect]
     Indication: ASTHMA
     Dosage: 300 MG, SINGLE
     Route: 065
     Dates: start: 20080103

REACTIONS (3)
  - ASTHMA [None]
  - LOWER RESPIRATORY TRACT INFECTION [None]
  - PULMONARY HYPERTENSION [None]
